FAERS Safety Report 9245036 (Version 1)
Quarter: 2013Q1

REPORT INFORMATION
  Report Type: Spontaneous
  Country: US (occurrence: None)
  Receive Date: 20121130
  Receipt Date: 20121130
  Transmission Date: 20140127
  Serious: Yes (Other)
  Sender: FDA-Public Use
  Company Number: 357464

PATIENT
  Age: 50 Year
  Sex: Female
  Weight: 90.2 kg

DRUGS (2)
  1. NOVOLOG MIX 70/30 [Suspect]
     Indication: TYPE 1 DIABETES MELLITUS
     Dosage: 40 U, QD, SUBCUTANEOUS
     Dates: start: 20120401, end: 20120718
  2. NOVOLOG FLEXPEN [Suspect]
     Indication: TYPE 1 DIABETES MELLITUS
     Dosage: 35 U, QD, SUBCUTANEOUS
     Dates: start: 201205, end: 20120718

REACTIONS (1)
  - Diabetic ketoacidosis [None]
